FAERS Safety Report 6107840-1 (Version None)
Quarter: 2009Q1

REPORT INFORMATION
  Report Type: 
  Country: None (occurrence: None)
  Receive Date: 20090309
  Receipt Date: 20090305
  Transmission Date: 20090719
  Serious: Yes (Hospitalization)
  Sender: FDA-Public Use
  Company Number: IT-BRISTOL-MYERS SQUIBB COMPANY-14531743

PATIENT
  Age: 67 Year
  Sex: Male
  Weight: 85 kg

DRUGS (5)
  1. CARBOPLATIN [Suspect]
     Indication: NON-SMALL CELL LUNG CANCER
     Dosage: CYCLICAL
     Route: 042
     Dates: start: 20090211, end: 20090211
  2. PACLITAXEL [Suspect]
     Indication: NON-SMALL CELL LUNG CANCER
     Dosage: CYCLICAL
     Route: 042
     Dates: start: 20090211, end: 20090211
  3. CP-751,871 [Suspect]
     Indication: NON-SMALL CELL LUNG CANCER
     Dosage: CYCLICAL
     Route: 042
     Dates: start: 20090211, end: 20090211
  4. TRANSTEC [Concomitant]
     Indication: PAIN
     Dosage: 1 DOSAGE FORM = 1 PATCH
     Dates: start: 20090206
  5. DELTACORTENE [Concomitant]
     Indication: PAIN
     Dates: start: 20090206

REACTIONS (1)
  - MYOCARDIAL ISCHAEMIA [None]
